FAERS Safety Report 9398543 (Version 2)
Quarter: 2013Q3

REPORT INFORMATION
  Report Type: Spontaneous
  Country: US (occurrence: US)
  Receive Date: 20130712
  Receipt Date: 20130726
  Transmission Date: 20140515
  Serious: No
  Sender: FDA-Public Use
  Company Number: US-VERTEX PHARMACEUTICALS INC-2013-007869

PATIENT
  Age: 68 Year
  Sex: Female
  Weight: 80 kg

DRUGS (11)
  1. INCIVEK [Suspect]
     Indication: HEPATITIS C
     Dosage: 750 MG, TID
     Route: 048
     Dates: start: 20130702
  2. RIBAVIRIN [Suspect]
     Indication: HEPATITIS C
     Dosage: 600 MG, BID
     Route: 048
     Dates: start: 20130702
  3. PEGASYS [Suspect]
     Indication: HEPATITIS C
     Dosage: 180 ?G, QW
     Route: 058
     Dates: start: 20130702
  4. ZOLOFT [Concomitant]
     Indication: DEPRESSION
     Dosage: 100 MG, BID
     Route: 048
     Dates: end: 20130701
  5. ZOLOFT [Concomitant]
     Dosage: 100 MG, QD
     Route: 048
     Dates: start: 20130702
  6. NEURONTIN [Concomitant]
     Dosage: 300 MG, TID
     Route: 048
  7. AMBIEN [Concomitant]
     Dosage: 10 MG, QD
     Route: 048
  8. ALDACTONE [Concomitant]
     Dosage: 100 MG, QD
     Route: 048
  9. LACTULOSE [Concomitant]
     Dosage: 15 ML, PRN
     Route: 048
  10. INSULIN LISPRO [Concomitant]
     Dosage: 37 IU, QD
     Route: 058
  11. INSULIN LISPRO [Concomitant]
     Dosage: 17 IU, QD
     Route: 058

REACTIONS (5)
  - Depression [Not Recovered/Not Resolved]
  - Tachyphrenia [Not Recovered/Not Resolved]
  - Headache [Recovered/Resolved]
  - Cold sweat [Not Recovered/Not Resolved]
  - Painful defaecation [Recovered/Resolved]
